FAERS Safety Report 8924614 (Version 2)
Quarter: 2013Q1

REPORT INFORMATION
  Report Type: Spontaneous
  Country: US (occurrence: US)
  Receive Date: 20121126
  Receipt Date: 20130228
  Transmission Date: 20140127
  Serious: No
  Sender: FDA-Public Use
  Company Number: US-BRISTOL-MYERS SQUIBB COMPANY-16888570

PATIENT
  Age: 58 Year
  Sex: Female

DRUGS (5)
  1. KOMBIGLYZE XR [Suspect]
     Indication: DIABETES MELLITUS INADEQUATE CONTROL
     Dosage: 1DF= 2.5MG/1000MG
     Route: 048
     Dates: start: 20111121
  2. MAXZIDE [Concomitant]
  3. LISINOPRIL [Concomitant]
  4. ECOTRIM [Concomitant]
  5. PRAVACOL [Concomitant]

REACTIONS (1)
  - Circumstance or information capable of leading to medication error [Unknown]
